FAERS Safety Report 22267290 (Version 1)
Quarter: 2023Q2

REPORT INFORMATION
  Report Type: Other
  Country: None (occurrence: IN)
  Receive Date: 20230428
  Receipt Date: 20230428
  Transmission Date: 20230721
  Serious: Yes (Hospitalization)
  Sender: FDA-Public Use
  Company Number: IN-B.Braun Medical Inc.-2140921

PATIENT
  Age: 64 Year
  Sex: Female
  Weight: 65 kg

DRUGS (13)
  1. MANNITOL [Suspect]
     Active Substance: MANNITOL
     Indication: Delirium
     Route: 042
  2. METFORMIN [Concomitant]
     Active Substance: METFORMIN HYDROCHLORIDE
  3. GLIMEPIRIDE [Concomitant]
     Active Substance: GLIMEPIRIDE
  4. AMLODIPINE [Concomitant]
     Active Substance: AMLODIPINE BESYLATE
  5. DEXAMETHASONE [Suspect]
     Active Substance: DEXAMETHASONE
  6. ISONIAZID [Concomitant]
     Active Substance: ISONIAZID
  7. RIFAMPIN [Concomitant]
     Active Substance: RIFAMPIN
  8. PYRAZINAMIDE [Concomitant]
     Active Substance: PYRAZINAMIDE
  9. Ethambutol regimen [Concomitant]
  10. LEVOFLOXACIN [Concomitant]
     Active Substance: LEVOFLOXACIN
  11. Injectable streptomycin [Concomitant]
  12. PIPERACILLIN AND TAZOBACTAM [Concomitant]
     Active Substance: PIPERACILLIN SODIUM\TAZOBACTAM SODIUM
  13. PYRIDOXINE [Concomitant]
     Active Substance: PYRIDOXINE

REACTIONS (1)
  - Drug ineffective [Unknown]
